FAERS Safety Report 5186274-0 (Version None)
Quarter: 2006Q4

REPORT INFORMATION
  Report Type: 
  Country: None (occurrence: None)
  Receive Date: 20061213
  Receipt Date: 20061130
  Transmission Date: 20070319
  Serious: Yes (Hospitalization)
  Sender: FDA-Public Use
  Company Number: 02100-JPN-06-0556

PATIENT
  Age: 69 Year
  Sex: Male

DRUGS (5)
  1. CILOSTAZOL [Suspect]
     Indication: PERIPHERAL VASCULAR DISORDER
     Dosage: 200 MG ORAL
     Route: 048
     Dates: start: 20050905, end: 20061028
  2. GLICLAZIDE [Concomitant]
  3. METFORMIN HYDROCHLORIDE [Concomitant]
  4. VOGLIBOSE [Concomitant]
  5. THIOCTIC ACID [Concomitant]

REACTIONS (2)
  - CEREBRAL INFARCTION [None]
  - VERTIGO [None]
